FAERS Safety Report 7735193-1 (Version None)
Quarter: 2011Q3

REPORT INFORMATION
  Report Type: 
  Country: None (occurrence: None)
  Receive Date: 20110907
  Receipt Date: 20110902
  Transmission Date: 20111222
  Serious: Yes (Other)
  Sender: FDA-Public Use
  Company Number: US-PFIZER INC-2011143776

PATIENT
  Sex: Male

DRUGS (3)
  1. CHANTIX [Suspect]
     Indication: SMOKING CESSATION THERAPY
     Dosage: 1 MG, UNK
     Dates: start: 20090401, end: 20090801
  2. XALATAN [Concomitant]
     Indication: GLAUCOMA
     Dosage: UNK
     Dates: start: 20090201, end: 20090701
  3. ATENOLOL [Concomitant]
     Indication: HYPERTENSION
     Dosage: UNK
     Dates: start: 20080501, end: 20090701

REACTIONS (9)
  - MENTAL DISORDER [None]
  - DEPRESSION [None]
  - AGGRESSION [None]
  - POST-TRAUMATIC STRESS DISORDER [None]
  - EMOTIONAL DISTRESS [None]
  - ABNORMAL BEHAVIOUR [None]
  - SUICIDE ATTEMPT [None]
  - IMPAIRED DRIVING ABILITY [None]
  - ANXIETY [None]
